FAERS Safety Report 10846770 (Version 2)
Quarter: 2015Q1

REPORT INFORMATION
  Report Type: Spontaneous
  Country: JP (occurrence: JP)
  Receive Date: 20150220
  Receipt Date: 20150324
  Transmission Date: 20150721
  Serious: Yes (Hospitalization, Other)
  Sender: FDA-Public Use
  Company Number: JP-APOTEX-2015AP006762

PATIENT
  Age: 8 Decade
  Sex: Male

DRUGS (2)
  1. HALOPERIDOL. [Suspect]
     Active Substance: HALOPERIDOL
     Indication: PRODUCT USED FOR UNKNOWN INDICATION
     Dosage: INJECTION
  2. PAXIL [Suspect]
     Active Substance: PAROXETINE HYDROCHLORIDE
     Indication: PRODUCT USED FOR UNKNOWN INDICATION
     Route: 048

REACTIONS (4)
  - Hyponatraemia [Recovered/Resolved]
  - Hypophagia [Recovered/Resolved]
  - Depressed level of consciousness [Recovered/Resolved]
  - Inappropriate antidiuretic hormone secretion [Recovering/Resolving]
